FAERS Safety Report 15130593 (Version 6)
Quarter: 2018Q4

REPORT INFORMATION
  Report Type: Report from Study
  Country: US (occurrence: US)
  Receive Date: 20180711
  Receipt Date: 20181026
  Transmission Date: 20190204
  Serious: Yes (Other)
  Sender: FDA-Public Use
  Company Number: US-PFIZER INC-2018279364

PATIENT
  Age: 71 Year
  Sex: Female

DRUGS (4)
  1. IBRANCE [Suspect]
     Active Substance: PALBOCICLIB
     Dosage: 100 MG, UNK
     Route: 048
     Dates: start: 20180612
  2. IBRANCE [Suspect]
     Active Substance: PALBOCICLIB
     Dosage: 100 MG, CYCLIC (DAILY- 21 ON, 7 OFF)
     Route: 048
     Dates: start: 20180708, end: 20180825
  3. IBRANCE [Suspect]
     Active Substance: PALBOCICLIB
     Indication: BREAST CANCER FEMALE
     Dosage: 125 MG, DAILY
     Route: 048
     Dates: start: 20180515
  4. IBRANCE [Suspect]
     Active Substance: PALBOCICLIB
     Dosage: 75 MG, CYCLIC (75 MG DAILY FOR 21 DAYS ON, 7 DAYS OFF)
     Route: 048
     Dates: start: 20180914

REACTIONS (13)
  - Bone marrow failure [Unknown]
  - Intraocular pressure increased [Unknown]
  - Fatigue [Unknown]
  - Arthralgia [Unknown]
  - Gastrooesophageal reflux disease [Unknown]
  - Condition aggravated [Unknown]
  - Dizziness [Unknown]
  - Neuropathy peripheral [Unknown]
  - Hypokalaemia [Unknown]
  - Back pain [Not Recovered/Not Resolved]
  - Leukopenia [Unknown]
  - Decreased appetite [Unknown]
  - Anaemia [Unknown]

NARRATIVE: CASE EVENT DATE: 2018
